FAERS Safety Report 10209347 (Version 14)
Quarter: 2015Q3

REPORT INFORMATION
  Report Type: Report from Study
  Country: TR (occurrence: TR)
  Receive Date: 20140531
  Receipt Date: 20150827
  Transmission Date: 20151125
  Serious: Yes (Hospitalization)
  Sender: FDA-Public Use
  Company Number: TR-ROCHE-1410610

PATIENT
  Age: 46 Year
  Sex: Female
  Weight: 47.5 kg

DRUGS (50)
  1. PAROL (TURKEY) [Concomitant]
     Dosage: SINGLE DOSE
     Route: 048
     Dates: start: 20140610, end: 20140610
  2. AVIL [Concomitant]
     Active Substance: PHENIRAMINE
     Dosage: SINGLE DOSE
     Route: 042
     Dates: start: 20140915, end: 20140915
  3. DEKORT [Concomitant]
     Active Substance: DEXAMETHASONE
     Dosage: SINGLE DOSE
     Route: 058
     Dates: start: 20140526, end: 20140526
  4. DEKORT [Concomitant]
     Active Substance: DEXAMETHASONE
     Dosage: SINGLE DOSE
     Route: 042
     Dates: start: 20140915, end: 20140915
  5. DEKORT [Concomitant]
     Active Substance: DEXAMETHASONE
     Dosage: SINGLE DOSE
     Route: 042
     Dates: start: 20141013, end: 20141013
  6. FAMOTIDIN [Concomitant]
     Dosage: SINGLE DOSE
     Route: 045
     Dates: start: 20140610, end: 20140610
  7. KYTRIL [Concomitant]
     Active Substance: GRANISETRON HYDROCHLORIDE
     Route: 042
     Dates: start: 20140819, end: 20140819
  8. AVIL [Concomitant]
     Active Substance: PHENIRAMINE
     Dosage: SINGLE DOSE
     Route: 058
     Dates: start: 20140527, end: 20140527
  9. DEKORT [Concomitant]
     Active Substance: DEXAMETHASONE
     Indication: PROPHYLAXIS
     Dosage: SINGLE DOSE
     Route: 042
     Dates: start: 20140527, end: 20140527
  10. DEKORT [Concomitant]
     Active Substance: DEXAMETHASONE
     Dosage: SINGLE DOSE
     Route: 042
     Dates: start: 20140623, end: 20140623
  11. OBINUTUZUMAB [Suspect]
     Active Substance: OBINUTUZUMAB
     Indication: CHRONIC LYMPHOCYTIC LEUKAEMIA
     Dosage: C1D1
     Route: 042
     Dates: start: 20140526, end: 20140526
  12. OBINUTUZUMAB [Suspect]
     Active Substance: OBINUTUZUMAB
     Route: 042
  13. PAROL (TURKEY) [Concomitant]
     Route: 048
     Dates: start: 20140527, end: 20140527
  14. FAMOTIDIN [Concomitant]
     Dosage: SINGLE DOSE
     Route: 042
     Dates: start: 20140623, end: 20140623
  15. FAMOTIDIN [Concomitant]
     Dosage: SINGLE DOSE
     Route: 042
     Dates: start: 20140915, end: 20140915
  16. KYTRIL [Concomitant]
     Active Substance: GRANISETRON HYDROCHLORIDE
     Indication: PROPHYLAXIS
     Route: 058
     Dates: start: 20140526, end: 20140526
  17. DEKORT [Concomitant]
     Active Substance: DEXAMETHASONE
     Route: 058
     Dates: start: 20140527, end: 20140527
  18. OBINUTUZUMAB [Suspect]
     Active Substance: OBINUTUZUMAB
     Dosage: C1D2?THIS WAS THE LAST DOSE PRIOR TO EVENT
     Route: 042
     Dates: start: 20140527, end: 20140527
  19. KYTRIL [Concomitant]
     Active Substance: GRANISETRON HYDROCHLORIDE
     Route: 058
     Dates: start: 20140527, end: 20140527
  20. AVIL [Concomitant]
     Active Substance: PHENIRAMINE
     Dosage: SINGLE DOSE
     Route: 042
     Dates: start: 20140527, end: 20140527
  21. NEUPOGEN [Concomitant]
     Active Substance: FILGRASTIM
     Dosage: 48MIU
     Route: 058
     Dates: start: 20141013, end: 20141013
  22. DEKORT [Concomitant]
     Active Substance: DEXAMETHASONE
     Dosage: SINGLE DOSE
     Route: 042
     Dates: start: 20140819, end: 20140819
  23. NEUPOGEN [Concomitant]
     Active Substance: FILGRASTIM
     Indication: PROPHYLAXIS
     Dosage: 48MIU
     Route: 058
     Dates: start: 20140915, end: 20140916
  24. PAROL (TURKEY) [Concomitant]
     Dosage: SINGLE DOSE
     Route: 048
     Dates: start: 20140623, end: 20140623
  25. FAMOTIDIN [Concomitant]
     Dosage: SINGLE DOSE
     Route: 042
     Dates: start: 20140819, end: 20140819
  26. KYTRIL [Concomitant]
     Active Substance: GRANISETRON HYDROCHLORIDE
     Route: 042
     Dates: start: 20140623, end: 20140623
  27. KYTRIL [Concomitant]
     Active Substance: GRANISETRON HYDROCHLORIDE
     Route: 042
     Dates: start: 20140721, end: 20140721
  28. AVIL [Concomitant]
     Active Substance: PHENIRAMINE
     Dosage: SINGLE DOSE
     Route: 042
     Dates: start: 20141013, end: 20141013
  29. DEKORT [Concomitant]
     Active Substance: DEXAMETHASONE
     Dosage: SINGLE DOSE
     Route: 058
     Dates: start: 20140527, end: 20140527
  30. DEKORT [Concomitant]
     Active Substance: DEXAMETHASONE
     Dosage: SINGLE DOSE
     Route: 058
     Dates: start: 20140819, end: 20140819
  31. DEKORT [Concomitant]
     Active Substance: DEXAMETHASONE
     Dosage: SINGLE DOSE
     Route: 042
     Dates: start: 20140721, end: 20140721
  32. BENZYDAMINE HCL [Concomitant]
     Indication: PROPHYLAXIS
     Route: 048
     Dates: start: 20140602, end: 20140602
  33. PAROL (TURKEY) [Concomitant]
     Indication: PROPHYLAXIS
     Route: 048
     Dates: start: 20140526, end: 20140526
  34. PAROL (TURKEY) [Concomitant]
     Dosage: SINGLE DOSE
     Route: 048
     Dates: start: 20140721, end: 20140721
  35. PAROL (TURKEY) [Concomitant]
     Dosage: SINGLE DOSE
     Route: 048
     Dates: start: 20140819, end: 20140819
  36. PAROL (TURKEY) [Concomitant]
     Dosage: SINGLE DOSE
     Route: 048
     Dates: start: 20141013, end: 20141013
  37. FAMOTIDIN [Concomitant]
     Dosage: SINGLE DOSE
     Route: 042
     Dates: start: 20141013, end: 20141013
  38. KYTRIL [Concomitant]
     Active Substance: GRANISETRON HYDROCHLORIDE
     Route: 042
     Dates: start: 20140610, end: 20140610
  39. KYTRIL [Concomitant]
     Active Substance: GRANISETRON HYDROCHLORIDE
     Dosage: SINGLE DOSE
     Route: 042
     Dates: start: 20141013, end: 20141013
  40. AVIL [Concomitant]
     Active Substance: PHENIRAMINE
     Dosage: SINGLE DOSE
     Route: 042
     Dates: start: 20140610, end: 20140610
  41. LANSOPRAZOLE. [Concomitant]
     Active Substance: LANSOPRAZOLE
     Indication: PROPHYLAXIS
     Route: 065
     Dates: start: 20140530, end: 20140701
  42. FAMOTIDIN [Concomitant]
     Indication: PROPHYLAXIS
     Dosage: SINGLE DOSE
     Route: 058
     Dates: start: 20140526, end: 20140526
  43. FAMOTIDIN [Concomitant]
     Dosage: SINGLE DOSE
     Route: 058
     Dates: start: 20140527, end: 20140527
  44. FAMOTIDIN [Concomitant]
     Dosage: SINGLE DOSE
     Route: 042
     Dates: start: 20140721, end: 20140721
  45. KYTRIL [Concomitant]
     Active Substance: GRANISETRON HYDROCHLORIDE
     Route: 042
     Dates: start: 20140915, end: 20140915
  46. AVIL [Concomitant]
     Active Substance: PHENIRAMINE
     Indication: PROPHYLAXIS
     Dosage: SINGLE DOSE
     Route: 058
     Dates: start: 20140526, end: 20140526
  47. AVIL [Concomitant]
     Active Substance: PHENIRAMINE
     Dosage: SINGLE DOSE
     Route: 058
     Dates: start: 20140819, end: 20140819
  48. AVIL [Concomitant]
     Active Substance: PHENIRAMINE
     Dosage: SINGLE DOSE
     Route: 042
     Dates: start: 20140623, end: 20140623
  49. AVIL [Concomitant]
     Active Substance: PHENIRAMINE
     Dosage: SINGLE DOSE
     Route: 042
     Dates: start: 20140819, end: 20140819
  50. DEKORT [Concomitant]
     Active Substance: DEXAMETHASONE
     Dosage: SINGLE DOSE
     Route: 042
     Dates: start: 20140610, end: 20140610

REACTIONS (1)
  - Febrile neutropenia [Recovered/Resolved]

NARRATIVE: CASE EVENT DATE: 20140528
